FAERS Safety Report 18283125 (Version 2)
Quarter: 2020Q3

REPORT INFORMATION
  Report Type: Spontaneous
  Country: DE (occurrence: DE)
  Receive Date: 20200918
  Receipt Date: 20200918
  Transmission Date: 20201103
  Serious: Yes (Life-Threatening, Hospitalization, Other)
  Sender: FDA-Public Use
  Company Number: DE-PFIZER INC-2020356901

PATIENT
  Age: 59 Year
  Sex: Female

DRUGS (21)
  1. FYCOMPA [Concomitant]
     Active Substance: PERAMPANEL
     Dosage: 2 MG, QD (1?0?0?0)
  2. FRISIUM [Concomitant]
     Active Substance: CLOBAZAM
     Dosage: 10 MG (0?0?0.5?0)
  3. BICANORM [Concomitant]
     Active Substance: SODIUM BICARBONATE
     Dosage: 2 G, TID (1?1?1?0) (ONCE EVERY 8 HOURS)
  4. BRIVARACETAM [Concomitant]
     Active Substance: BRIVARACETAM
     Dosage: 100 MG, BID  (1?0?1?0) (ONCE EVERY 12 HOURS)
  5. MELPERONE [Concomitant]
     Active Substance: MELPERONE
     Dosage: 25 MG, QD (0?0?0?1)
  6. RAMIPRIL. [Suspect]
     Active Substance: RAMIPRIL
     Dosage: 2.5 MG, QD (1?0?0?0)
  7. KALINOR?RETARD P [Concomitant]
     Dosage: 600 MG (1?2?1?0)
  8. SIMETHICONE (DIMETHICONE) [Concomitant]
     Active Substance: DIMETHICONE
     Dosage: 5 ML, QID (1?1?1?1) (ONCE EVERY 6 HOURS)
  9. DOCITON [Concomitant]
     Active Substance: PROPRANOLOL HYDROCHLORIDE
     Dosage: 10 MG (10 MG, 2.5?2.5?0?2.5)
  10. LAMOTRIGINE. [Concomitant]
     Active Substance: LAMOTRIGINE
     Dosage: 100 MG (1.5?0?1.25?0)
  11. VITAMIN B12 [Concomitant]
     Active Substance: CYANOCOBALAMIN
     Dosage: NK MG, 1?0?1?0
  12. HYDROCORTISONE SODIUM SUCCINATE [Suspect]
     Active Substance: HYDROCORTISONE SODIUM SUCCINATE
     Dosage: 60 MG, 1X/DAY (1?0?0?0)
  13. SPIRONOLACTON [Suspect]
     Active Substance: SPIRONOLACTONE
     Dosage: 100 MG, BID (1?0?1?0) (ONCE EVERY 12 HOURS)
  14. TORASEMID [Suspect]
     Active Substance: TORSEMIDE
     Dosage: 20 MG, BID (1?1?0?0) (ONCE EVERY 12 HOURS)
  15. LEVOTHYROXINE SODIUM. [Concomitant]
     Active Substance: LEVOTHYROXINE SODIUM
     Dosage: 225 UG, QD (1?0?0?0)
  16. ZONISAMIDE. [Concomitant]
     Active Substance: ZONISAMIDE
     Dosage: 100 MG (1?0?2?0)
  17. ARANESP [Concomitant]
     Active Substance: DARBEPOETIN ALFA
     Dosage: 80 UG (THURSDAY)
  18. HYDROCORTISONE SODIUM SUCCINATE [Suspect]
     Active Substance: HYDROCORTISONE SODIUM SUCCINATE
     Dosage: 40 MG, 1X/DAY (0?1?0?0)
  19. PANTOPRAZOLE [Concomitant]
     Active Substance: PANTOPRAZOLE
     Dosage: 40 MG, QD (0?0?1?0)
  20. ASTONIN [FLUDROCORTISONE] [Concomitant]
     Dosage: 0.1 MG, QD (1?0?0?0)
  21. CLEXANE [Concomitant]
     Active Substance: ENOXAPARIN SODIUM
     Dosage: 80 MG, QD (0?0?1?0)
     Route: 058

REACTIONS (4)
  - Condition aggravated [Recovering/Resolving]
  - Hyperglycaemia [Recovering/Resolving]
  - General physical health deterioration [Recovering/Resolving]
  - Depressed level of consciousness [Recovering/Resolving]
